FAERS Safety Report 8718793 (Version 2)
Quarter: 2013Q4

REPORT INFORMATION
  Report Type: Spontaneous
  Country: US (occurrence: US)
  Receive Date: 20120810
  Receipt Date: 20131101
  Transmission Date: 20140711
  Serious: No
  Sender: FDA-Public Use
  Company Number: US-009507513-1208USA003105

PATIENT
  Age: 60 Year
  Sex: Female

DRUGS (1)
  1. PEGINTRON [Suspect]
     Indication: HEPATITIS C
     Dosage: 50 MICROGRAM, UNK
     Route: 058
     Dates: start: 20120727

REACTIONS (1)
  - Influenza like illness [Unknown]
